FAERS Safety Report 7339605-7 (Version None)
Quarter: 2011Q1

REPORT INFORMATION
  Report Type: 
  Country: None (occurrence: None)
  Receive Date: 20110308
  Receipt Date: 20110124
  Transmission Date: 20110831
  Serious: No
  Sender: FDA-Public Use
  Company Number: US-B.I. PHARMACEUTICALS,INC./RIDGEFIELD-2011-BP-03380BP

PATIENT
  Sex: Male

DRUGS (2)
  1. BLOOD PRESSURE MEDICATIONS [Concomitant]
     Indication: BLOOD PRESSURE
  2. PRADAXA [Suspect]

REACTIONS (1)
  - BLOOD PRESSURE INCREASED [None]
